FAERS Safety Report 8405271-2 (Version None)
Quarter: 2012Q2

REPORT INFORMATION
  Report Type: 
  Country: None (occurrence: None)
  Receive Date: 20120603
  Receipt Date: 20120423
  Transmission Date: 20120825
  Serious: Yes (Other)
  Sender: FDA-Public Use
  Company Number: PHHY2012KR041539

PATIENT
  Sex: Male

DRUGS (1)
  1. EXJADE [Suspect]
     Indication: MYELODYSPLASTIC SYNDROME
     Route: 048
     Dates: start: 20070719, end: 20071210

REACTIONS (4)
  - CONDITION AGGRAVATED [None]
  - MYELODYSPLASTIC SYNDROME [None]
  - NEPHROPATHY [None]
  - GENERAL PHYSICAL HEALTH DETERIORATION [None]
